FAERS Safety Report 10462309 (Version 2)
Quarter: 2014Q3

REPORT INFORMATION
  Report Type: Spontaneous
  Country: AT (occurrence: AT)
  Receive Date: 20140918
  Receipt Date: 20140918
  Transmission Date: 20150326
  Serious: Yes (Hospitalization, Other)
  Sender: FDA-Public Use
  Company Number: AT-ASTRAZENECA-2014SE12178

PATIENT
  Age: 42 Year
  Sex: Female

DRUGS (19)
  1. PSYCHOPAX [Concomitant]
     Active Substance: DIAZEPAM
     Dates: start: 20121217, end: 20121226
  2. EFECTIN [Suspect]
     Active Substance: VENLAFAXINE HYDROCHLORIDE
     Route: 065
     Dates: start: 20121117, end: 20121118
  3. EFECTIN [Suspect]
     Active Substance: VENLAFAXINE HYDROCHLORIDE
     Route: 065
     Dates: start: 20121119, end: 20121203
  4. ZYPREXA [Suspect]
     Active Substance: OLANZAPINE
     Route: 065
     Dates: start: 20121117, end: 20121118
  5. LAEVOLAC [Concomitant]
     Active Substance: LACTULOSE
  6. ZYPREXA [Suspect]
     Active Substance: OLANZAPINE
     Route: 065
     Dates: start: 20121119, end: 20121119
  7. SAROTEN [Concomitant]
     Active Substance: AMITRIPTYLINE
     Dates: start: 20130114
  8. SEROQUEL [Suspect]
     Active Substance: QUETIAPINE FUMARATE
     Route: 048
     Dates: start: 20121126, end: 20121128
  9. TRITTICO [Suspect]
     Active Substance: TRAZODONE HYDROCHLORIDE
     Route: 065
     Dates: start: 20121115, end: 20121203
  10. SAROTEN [Concomitant]
     Active Substance: AMITRIPTYLINE
     Dates: start: 20121217, end: 20130113
  11. CIPRALEX [Concomitant]
     Active Substance: ESCITALOPRAM OXALATE
     Dates: start: 20121109, end: 20121117
  12. PRAXITEN [Suspect]
     Active Substance: OXAZEPAM
     Route: 065
     Dates: start: 20121109, end: 20121121
  13. SAROTEN [Concomitant]
     Active Substance: AMITRIPTYLINE
     Dates: start: 20121204, end: 20121216
  14. PSYCHOPAX [Concomitant]
     Active Substance: DIAZEPAM
     Dates: start: 20121204, end: 20121216
  15. SEROQUEL [Suspect]
     Active Substance: QUETIAPINE FUMARATE
     Route: 048
     Dates: start: 20121129, end: 20121203
  16. ZYPREXA [Suspect]
     Active Substance: OLANZAPINE
     Route: 065
     Dates: start: 20121129, end: 20121130
  17. SAROTEN [Concomitant]
     Active Substance: AMITRIPTYLINE
     Dates: start: 20121130, end: 20121203
  18. PRAXITEN [Suspect]
     Active Substance: OXAZEPAM
     Route: 065
     Dates: start: 20121122, end: 20121203
  19. ZYPREXA [Suspect]
     Active Substance: OLANZAPINE
     Route: 065
     Dates: start: 20121120, end: 20121128

REACTIONS (2)
  - Rash generalised [Recovered/Resolved]
  - Weight increased [Unknown]

NARRATIVE: CASE EVENT DATE: 20121128
